FAERS Safety Report 20155504 (Version 1)
Quarter: 2021Q4

REPORT INFORMATION
  Report Type: Spontaneous
  Country: FR (occurrence: FR)
  Receive Date: 20211207
  Receipt Date: 20211207
  Transmission Date: 20220304
  Serious: Yes (Hospitalization)
  Sender: FDA-Public Use
  Company Number: None

PATIENT
  Age: 42 Year
  Sex: Female
  Weight: 48 kg

DRUGS (4)
  1. PEMETREXED [Suspect]
     Active Substance: PEMETREXED
     Indication: Lung adenocarcinoma stage IV
     Dosage: 500 MG/M2, 4/W
     Route: 041
     Dates: start: 20210623
  2. INNOHEP [Suspect]
     Active Substance: TINZAPARIN SODIUM
     Indication: Vena cava thrombosis
     Dosage: 8000 INTERNATIONAL UNIT, DAILY
     Route: 058
     Dates: start: 20211022, end: 20211029
  3. INNOHEP [Suspect]
     Active Substance: TINZAPARIN SODIUM
     Dosage: 10000 INTERNATIONAL UNIT, DAILY
     Route: 058
     Dates: end: 20211109
  4. KEYTRUDA [Suspect]
     Active Substance: PEMBROLIZUMAB
     Indication: Lung adenocarcinoma stage IV
     Dosage: 200 MG, 3/W
     Route: 041
     Dates: start: 20210623, end: 20211012

REACTIONS (1)
  - Autoimmune heparin-induced thrombocytopenia [Recovered/Resolved]

NARRATIVE: CASE EVENT DATE: 20211104
